FAERS Safety Report 8907781 (Version 1)
Quarter: 2012Q4

REPORT INFORMATION
  Report Type: 
  Country: US (occurrence: US)
  Receive Date: 20121114
  Receipt Date: 20121114
  Transmission Date: 20130627
  Serious: Yes (Other)
  Sender: FDA-Public Use
  Company Number: PHEH2012US022439

PATIENT
  Age: 9 Year
  Sex: Male

DRUGS (2)
  1. AFINITOR [Suspect]
     Indication: GLIOMA
     Dosage: 2.5 mg, daily
     Route: 048
     Dates: start: 20120928
  2. DEPAKOTE [Concomitant]

REACTIONS (3)
  - Fall [Not Recovered/Not Resolved]
  - Tooth loss [Not Recovered/Not Resolved]
  - Oral infection [Not Recovered/Not Resolved]
